FAERS Safety Report 5524442-6 (Version None)
Quarter: 2007Q4

REPORT INFORMATION
  Report Type: 
  Country: None (occurrence: None)
  Receive Date: 20071122
  Receipt Date: 20071114
  Transmission Date: 20080405
  Serious: Yes (Hospitalization)
  Sender: FDA-Public Use
  Company Number: US-JNJFOC-20070803064

PATIENT
  Sex: Female
  Weight: 67.59 kg

DRUGS (18)
  1. FENTANYL TRANSDERMAL SYSTEM [Suspect]
     Indication: BACK PAIN
     Route: 062
  2. FENTANYL TRANSDERMAL SYSTEM [Suspect]
     Indication: BACK PAIN
     Route: 062
  3. NORVASC [Concomitant]
     Indication: BLOOD PRESSURE
     Route: 048
  4. CYMBALTA [Concomitant]
     Indication: PAIN
     Route: 048
  5. PLAVIX [Concomitant]
     Route: 048
  6. GLUCOPHAGE [Concomitant]
     Indication: DIABETES MELLITUS
     Route: 048
  7. TOPROL-XL [Concomitant]
     Indication: BLOOD PRESSURE
     Route: 048
  8. ZESTRIL [Concomitant]
     Route: 048
  9. NEXIUM [Concomitant]
     Indication: GASTROOESOPHAGEAL REFLUX DISEASE
     Route: 048
  10. SYNTHROID [Concomitant]
     Indication: THYROID DISORDER
     Route: 048
  11. ALLEGRA [Concomitant]
     Indication: MULTIPLE ALLERGIES
     Route: 048
  12. CELEBREX [Concomitant]
     Indication: PAIN
     Route: 048
  13. ZOCOR [Concomitant]
     Route: 048
  14. ASPIRIN [Concomitant]
     Route: 048
  15. SINGULAIR [Concomitant]
     Indication: MULTIPLE ALLERGIES
     Route: 048
  16. VICODIN [Concomitant]
     Indication: PAIN
     Dosage: 7.5/750MG, AS NEEDED
     Route: 048
  17. LYRICA [Concomitant]
     Indication: NEUROPATHY
     Route: 048
  18. ADVAIR DISKUS 100/50 [Concomitant]
     Dosage: 500/50  1 DOSE = 1 PUFF
     Route: 048

REACTIONS (5)
  - CARDIAC DISORDER [None]
  - HAEMOGLOBIN DECREASED [None]
  - MEDICAL DEVICE COMPLICATION [None]
  - PHARMACEUTICAL PRODUCT COMPLAINT [None]
  - WRONG TECHNIQUE IN DRUG USAGE PROCESS [None]
